FAERS Safety Report 9379807 (Version 1)
Quarter: 2013Q2

REPORT INFORMATION
  Report Type: Spontaneous
  Country: FR (occurrence: None)
  Receive Date: 20130627
  Receipt Date: 20130627
  Transmission Date: 20140414
  Serious: Yes (Other)
  Sender: FDA-Public Use
  Company Number: 2013P1010049

PATIENT
  Sex: Male

DRUGS (4)
  1. LISINOPRIL AND HYDROCHLOROTHIAZIDE [Suspect]
  2. ATORVASTATIN [Suspect]
  3. ROFECOXIB [Suspect]
  4. GINKGO [Suspect]

REACTIONS (3)
  - Coagulation factor VIII level decreased [None]
  - Acquired haemophilia [None]
  - Haemorrhage [None]
